FAERS Safety Report 25162427 (Version 1)
Quarter: 2025Q2

REPORT INFORMATION
  Report Type: Spontaneous
  Country: GB (occurrence: GB)
  Receive Date: 20250404
  Receipt Date: 20250404
  Transmission Date: 20250717
  Serious: Yes (Other)
  Sender: GLAXOSMITHKLINE
  Company Number: None

PATIENT

DRUGS (4)
  1. ZYBAN [Suspect]
     Active Substance: BUPROPION HYDROCHLORIDE
     Indication: Ex-tobacco user
     Dosage: 150 MG, QD
     Route: 048
     Dates: start: 20021023
  2. ZYBAN [Suspect]
     Active Substance: BUPROPION HYDROCHLORIDE
     Dosage: 300 MG, QD (150 MILLIGRAM, BID)
     Route: 048
  3. NEXIUM [Suspect]
     Active Substance: ESOMEPRAZOLE MAGNESIUM
     Indication: Dyspepsia
     Dosage: 20 MG, QD
     Route: 048
     Dates: start: 20021024
  4. Logynon [Concomitant]
     Indication: Oral contraception
     Dosage: 1 DF, QD
     Route: 048
     Dates: start: 20020101

REACTIONS (5)
  - Poor quality sleep [Not Recovered/Not Resolved]
  - Nervousness [Not Recovered/Not Resolved]
  - Lethargy [Not Recovered/Not Resolved]
  - Tinnitus [Not Recovered/Not Resolved]
  - Feeling hot [Unknown]

NARRATIVE: CASE EVENT DATE: 20021024
